FAERS Safety Report 19650125 (Version 1)
Quarter: 2021Q3

REPORT INFORMATION
  Report Type: Spontaneous
  Country: US (occurrence: US)
  Receive Date: 20210802
  Receipt Date: 20210802
  Transmission Date: 20211014
  Serious: Yes (Death, Life-Threatening, Hospitalization, Other)
  Sender: FDA-Public Use
  Company Number: US-SA-2021SA250784

PATIENT
  Age: 84 Year
  Sex: Male
  Weight: 71.14 kg

DRUGS (3)
  1. LEUPRORELIN ACETATE [Suspect]
     Active Substance: LEUPROLIDE ACETATE
     Dosage: UNK
  2. JEVTANA [Suspect]
     Active Substance: CABAZITAXEL
     Indication: HORMONE-REFRACTORY PROSTATE CANCER
     Dosage: 27 MG, TIW
     Route: 042
     Dates: start: 20190418
  3. ENZALUTAMIDE [Concomitant]
     Active Substance: ENZALUTAMIDE
     Dosage: UNK

REACTIONS (13)
  - Sepsis [Fatal]
  - Intestinal perforation [Not Recovered/Not Resolved]
  - Hypotension [Unknown]
  - Abscess [Unknown]
  - Tachycardia [Unknown]
  - Neutropenia [Unknown]
  - Thrombocytopenia [Unknown]
  - Asthenia [Unknown]
  - Atrial fibrillation [Unknown]
  - Abdominal pain [Unknown]
  - Diverticulitis [Not Recovered/Not Resolved]
  - Nausea [Unknown]
  - Anaemia [Unknown]

NARRATIVE: CASE EVENT DATE: 20190423
